FAERS Safety Report 25789095 (Version 1)
Quarter: 2025Q3

REPORT INFORMATION
  Report Type: Spontaneous
  Country: CN (occurrence: CN)
  Receive Date: 20250911
  Receipt Date: 20250911
  Transmission Date: 20251020
  Serious: Yes (Life-Threatening, Hospitalization)
  Sender: ROCHE
  Company Number: None

PATIENT
  Age: 9 Year
  Sex: Female

DRUGS (9)
  1. MYCOPHENOLATE MOFETIL [Suspect]
     Active Substance: MYCOPHENOLATE MOFETIL
     Indication: Immunosuppressant drug therapy
     Route: 048
     Dates: start: 20240312
  2. CYCLOPHOSPHAMIDE [Suspect]
     Active Substance: CYCLOPHOSPHAMIDE
     Indication: Immunosuppressant drug therapy
     Route: 065
     Dates: start: 20240312
  3. CYCLOSPORINE [Suspect]
     Active Substance: CYCLOSPORINE
     Indication: Immunosuppressant drug therapy
     Route: 065
     Dates: start: 20240312
  4. METHYLPREDNISOLONE SODIUM SUCCINATE [Concomitant]
     Active Substance: METHYLPREDNISOLONE SODIUM SUCCINATE
     Indication: Acute graft versus host disease in skin
     Route: 042
     Dates: start: 202403, end: 202403
  5. METHYLPREDNISOLONE SODIUM SUCCINATE [Concomitant]
     Active Substance: METHYLPREDNISOLONE SODIUM SUCCINATE
     Dates: start: 202403
  6. RUXOLITINIB [Concomitant]
     Active Substance: RUXOLITINIB
  7. CASPOFUNGIN [Concomitant]
     Active Substance: CASPOFUNGIN
  8. MEROPENEM [Concomitant]
     Active Substance: MEROPENEM
  9. NORVANCOMYCIN [Concomitant]
     Active Substance: NORVANCOMYCIN

REACTIONS (5)
  - Hyponatraemic seizure [Recovering/Resolving]
  - Hypertensive encephalopathy [Unknown]
  - Inappropriate antidiuretic hormone secretion [Recovering/Resolving]
  - Cystitis haemorrhagic [Recovering/Resolving]
  - Urinary tract infection [Recovering/Resolving]

NARRATIVE: CASE EVENT DATE: 20240409
